FAERS Safety Report 5338675-5 (Version None)
Quarter: 2007Q2

REPORT INFORMATION
  Report Type: 
  Country: None (occurrence: None)
  Receive Date: 20070322
  Receipt Date: 20060504
  Transmission Date: 20071010
  Serious: Yes (Hospitalization, Other)
  Sender: FDA-Public Use
  Company Number: 200611494BCC

PATIENT
  Age: 75 Year
  Sex: Male
  Weight: 88.4514 kg

DRUGS (9)
  1. ALEVE [Suspect]
     Indication: ARTHRITIS
     Dosage: 220 MG, QD, ORAL
     Route: 048
     Dates: start: 19920101, end: 20060101
  2. SAW PALMETTO [Concomitant]
  3. CRANBERRY PILLS [Concomitant]
  4. VITAMIN A [Concomitant]
  5. VITAMIN B [Concomitant]
  6. ASCORBIC ACID [Concomitant]
  7. SELENIUM SULFIDE [Concomitant]
  8. CENTRUM [Concomitant]
  9. SURBEX-T [Concomitant]

REACTIONS (3)
  - HAEMATOCHEZIA [None]
  - HAEMORRHAGE [None]
  - LARGE INTESTINAL HAEMORRHAGE [None]
